FAERS Safety Report 19822637 (Version 2)
Quarter: 2021Q4

REPORT INFORMATION
  Report Type: Spontaneous
  Country: US (occurrence: US)
  Receive Date: 20210913
  Receipt Date: 20211214
  Transmission Date: 20220303
  Serious: No
  Sender: FDA-Public Use
  Company Number: US-GLOBAL BLOOD THERAPEUTICS INC-US-GBT-21-01978

PATIENT
  Sex: Male

DRUGS (1)
  1. OXBRYTA [Suspect]
     Active Substance: VOXELOTOR
     Indication: Product used for unknown indication
     Route: 048

REACTIONS (6)
  - Sickle cell disease [Unknown]
  - Coronavirus infection [Unknown]
  - Irritability [Unknown]
  - Ill-defined disorder [Unknown]
  - Product dose omission issue [Unknown]
  - Off label use [Unknown]
